FAERS Safety Report 11325806 (Version 3)
Quarter: 2015Q3

REPORT INFORMATION
  Report Type: Spontaneous
  Country: JP (occurrence: JP)
  Receive Date: 20150731
  Receipt Date: 20150814
  Transmission Date: 20151125
  Serious: Yes (Hospitalization, Other)
  Sender: FDA-Public Use
  Company Number: JP-PFIZER INC-2015251232

PATIENT
  Age: 70 Year
  Sex: Male
  Weight: 59 kg

DRUGS (28)
  1. CAMPTO [Suspect]
     Active Substance: IRINOTECAN
     Indication: PANCREATIC CARCINOMA
     Dosage: 240 MG, 1X/DAY, (147.7 MG/M2)
     Route: 041
     Dates: start: 20140430, end: 20140430
  2. CAMPTO [Suspect]
     Active Substance: IRINOTECAN
     Dosage: 240 MG, 1X/DAY, (147.7 MG/M2)
     Route: 041
     Dates: start: 20140612, end: 20140612
  3. CAMPTO [Suspect]
     Active Substance: IRINOTECAN
     Dosage: 240 MG, 1X/DAY, (147.7 MG/M2)
     Route: 041
     Dates: start: 20140710, end: 20140710
  4. ELPLAT [Suspect]
     Active Substance: OXALIPLATIN
     Dosage: 130 MG, 1X/DAY, (80 MG/M2)
     Route: 041
     Dates: start: 20140612, end: 20140612
  5. ELPLAT [Suspect]
     Active Substance: OXALIPLATIN
     Dosage: 130 MG, 1X/DAY, (80 MG/M2)
     Route: 041
     Dates: start: 20140728, end: 20140728
  6. 5-FU [Concomitant]
     Active Substance: FLUOROURACIL
     Indication: PANCREATIC CARCINOMA
     Dosage: 3860 MG, CYCLIC (3860 MG/BODY/D1-2 (2375.4 MG/M2/D1-2))
     Dates: start: 20140430
  7. CAMPTO [Suspect]
     Active Substance: IRINOTECAN
     Dosage: 240 MG, 1X/DAY, (147.7 MG/M2)
     Route: 041
     Dates: start: 20140728, end: 20140728
  8. LEVOFOLINATE [Suspect]
     Active Substance: LEVOLEUCOVORIN CALCIUM
     Indication: PANCREATIC CARCINOMA
     Dosage: 320 MG, 1X/DAY, (196.9 MG/M2)
     Route: 041
     Dates: start: 20140430, end: 20140430
  9. ELPLAT [Suspect]
     Active Substance: OXALIPLATIN
     Indication: PANCREATIC CARCINOMA
     Dosage: 130 MG, 1X/DAY, (80 MG/M2)
     Route: 041
     Dates: start: 20140430, end: 20140430
  10. ELPLAT [Suspect]
     Active Substance: OXALIPLATIN
     Dosage: 130 MG, 1X/DAY, (80 MG/M2)
     Route: 041
     Dates: start: 20140529, end: 20140529
  11. ELPLAT [Suspect]
     Active Substance: OXALIPLATIN
     Dosage: 130 MG, 1X/DAY, (80 MG/M2)
     Route: 041
     Dates: start: 20140626, end: 20140626
  12. LEVOFOLINATE [Suspect]
     Active Substance: LEVOLEUCOVORIN CALCIUM
     Dosage: 310 MG, 1X/DAY, (190.8 MG/M2)
     Route: 041
     Dates: start: 20140818, end: 20140818
  13. 5-FU [Concomitant]
     Active Substance: FLUOROURACIL
     Dosage: 2910 MG, CYCLIC (2910 MG/BODY/D1-2 (1790.8 MG/M2/D1-2))
     Dates: start: 20140529
  14. CAMPTO [Suspect]
     Active Substance: IRINOTECAN
     Dosage: 130 MG, 1X/DAY, (80 MG/M2)
     Route: 041
     Dates: start: 20140908, end: 20140908
  15. ELPLAT [Suspect]
     Active Substance: OXALIPLATIN
     Dosage: 130 MG, 1X/DAY, (80 MG/M2)
     Route: 041
     Dates: start: 20140818, end: 20140818
  16. ELPLAT [Suspect]
     Active Substance: OXALIPLATIN
     Dosage: 120 MG, 1X/DAY, (73.8 MG/M2)
     Route: 041
     Dates: start: 20140908, end: 20140908
  17. LEVOFOLINATE [Suspect]
     Active Substance: LEVOLEUCOVORIN CALCIUM
     Dosage: 320 MG, 1X/DAY, (196.9 MG/M2)
     Route: 041
     Dates: start: 20140529, end: 20140529
  18. LEVOFOLINATE [Suspect]
     Active Substance: LEVOLEUCOVORIN CALCIUM
     Dosage: 300 MG, 1X/DAY, (184.6 MG/M2)
     Route: 041
     Dates: start: 20140908, end: 20140908
  19. LEVOFOLINATE [Suspect]
     Active Substance: LEVOLEUCOVORIN CALCIUM
     Dosage: 320 MG, 1X/DAY, (196.9 MG/M2)
     Route: 041
     Dates: start: 20140612, end: 20140612
  20. LEVOFOLINATE [Suspect]
     Active Substance: LEVOLEUCOVORIN CALCIUM
     Dosage: 320 MG, 1X/DAY, (196.9 MG/M2)
     Route: 041
     Dates: start: 20140626, end: 20140626
  21. LEVOFOLINATE [Suspect]
     Active Substance: LEVOLEUCOVORIN CALCIUM
     Dosage: 320 MG, 1X/DAY, (196.9 MG/M2)
     Route: 041
     Dates: start: 20140728, end: 20140728
  22. CAMPTO [Suspect]
     Active Substance: IRINOTECAN
     Dosage: 240 MG, 1X/DAY, (147.7 MG/M2)
     Route: 041
     Dates: start: 20140529, end: 20140529
  23. CAMPTO [Suspect]
     Active Substance: IRINOTECAN
     Dosage: 180 MG, 1X/DAY, (110.8 MG/M2)
     Route: 041
     Dates: start: 20140818, end: 20140818
  24. LEVOFOLINATE [Suspect]
     Active Substance: LEVOLEUCOVORIN CALCIUM
     Dosage: 320 MG, 1X/DAY, (196.9 MG/M2)
     Route: 041
     Dates: start: 20140710, end: 20140710
  25. CAMPTO [Suspect]
     Active Substance: IRINOTECAN
     Dosage: 240 MG, 1X/DAY, (147.7 MG/M2)
     Route: 041
     Dates: start: 20140626, end: 20140626
  26. ELPLAT [Suspect]
     Active Substance: OXALIPLATIN
     Dosage: 130 MG, 1X/DAY, (80 MG/M2)
     Route: 041
     Dates: start: 20140710, end: 20140710
  27. 5-FU [Concomitant]
     Active Substance: FLUOROURACIL
     Dosage: 2830 MG, CYCLIC (2830 MG/BODY/D1-2 (1741.5 MG/M2/D1-2).
     Dates: start: 20140818
  28. 5-FU [Concomitant]
     Active Substance: FLUOROURACIL
     Dosage: 2740 MG, CYCLIC (2740 MG/BODY/D1-2 (1686.2 MG/M2/D1-2))
     Dates: start: 20140908

REACTIONS (14)
  - Hypokalaemia [Unknown]
  - Diarrhoea [Recovered/Resolved]
  - Neutrophil count decreased [Recovered/Resolved]
  - Pyrexia [Recovered/Resolved]
  - Vomiting [Recovered/Resolved]
  - Enteritis infectious [Unknown]
  - Febrile neutropenia [Recovered/Resolved]
  - Nausea [Recovered/Resolved]
  - Haemoglobin decreased [Unknown]
  - Peripheral sensory neuropathy [Recovered/Resolved]
  - Fatigue [Recovering/Resolving]
  - Stomatitis [Recovered/Resolved]
  - Decreased appetite [Recovering/Resolving]
  - White blood cell count decreased [Recovered/Resolved]

NARRATIVE: CASE EVENT DATE: 20140515
